FAERS Safety Report 7767806-2 (Version None)
Quarter: 2011Q3

REPORT INFORMATION
  Report Type: 
  Country: None (occurrence: None)
  Receive Date: 20110922
  Receipt Date: 20110606
  Transmission Date: 20111222
  Serious: No
  Sender: FDA-Public Use
  Company Number: US-ASTRAZENECA-2010SE17730

PATIENT
  Age: 45 Year
  Sex: Female

DRUGS (3)
  1. SEROQUEL [Suspect]
     Route: 048
  2. ROBITUSSEN [Interacting]
  3. SEROQUEL [Interacting]
     Route: 048

REACTIONS (5)
  - ADVERSE DRUG REACTION [None]
  - SOMNOLENCE [None]
  - HEADACHE [None]
  - NASOPHARYNGITIS [None]
  - DRUG INTERACTION [None]
